FAERS Safety Report 19644900 (Version 1)
Quarter: 2021Q3

REPORT INFORMATION
  Report Type: Spontaneous
  Country: US (occurrence: US)
  Receive Date: 20210802
  Receipt Date: 20210802
  Transmission Date: 20211014
  Serious: Yes (Other)
  Sender: FDA-Public Use
  Company Number: US-AUROBINDO-AUR-APL-2021-032314

PATIENT
  Age: 29 Year
  Sex: Female

DRUGS (9)
  1. MIDAZOLAM. [Suspect]
     Active Substance: MIDAZOLAM
     Indication: STATUS EPILEPTICUS
     Dosage: 2.5 MILLIGRAM/KILOGRAM/ HR
     Route: 065
  2. PROPOFOL. [Concomitant]
     Active Substance: PROPOFOL
     Dosage: 40 MICROGRAM/KILOGRAM/ MIN
     Route: 065
  3. VALPROIC ACID. [Concomitant]
     Active Substance: VALPROIC ACID
     Indication: SEIZURE
     Dosage: 20 MG/KG LOADING DOSE, MAINTENANCE AT 750 MG Q8H
     Route: 065
  4. PENTOBARBITAL. [Concomitant]
     Active Substance: PENTOBARBITAL
     Indication: SEIZURE
     Dosage: 5 MILLIGRAM/KILOGRAM
     Route: 040
  5. KETAMINE HYDROCHLORIDE INJECTION [Suspect]
     Active Substance: KETAMINE HYDROCHLORIDE
     Indication: STATUS EPILEPTICUS
     Dosage: 1.5 MILLIGRAM/KILOGRAM
     Route: 040
  6. KETAMINE HYDROCHLORIDE INJECTION [Suspect]
     Active Substance: KETAMINE HYDROCHLORIDE
     Dosage: 7.5 MILLIGRAM/KILOGRAM/ HR
     Route: 040
  7. PENTOBARBITAL. [Concomitant]
     Active Substance: PENTOBARBITAL
     Dosage: 1 MILLIGRAM/KILOGRAM PER HOUR MAINTENANCE
     Route: 040
  8. PROPOFOL. [Concomitant]
     Active Substance: PROPOFOL
     Indication: SEIZURE
     Dosage: UNK
     Route: 065
  9. PENTOBARBITAL. [Concomitant]
     Active Substance: PENTOBARBITAL
     Dosage: 3 MILLIGRAM/KILOGRAM/ HR
     Route: 040

REACTIONS (2)
  - Treatment failure [Unknown]
  - Product use in unapproved indication [Unknown]
